FAERS Safety Report 4648829-9 (Version None)
Quarter: 2005Q2

REPORT INFORMATION
  Report Type: 
  Country: None (occurrence: None)
  Receive Date: 20050429
  Receipt Date: 20050426
  Transmission Date: 20051028
  Serious: Yes (Death)
  Sender: FDA-Public Use
  Company Number: US-JNJFOC-20050403356

PATIENT
  Age: 66 Year
  Sex: Female
  Weight: 57.7 kg

DRUGS (16)
  1. DOXIL [Suspect]
     Indication: BREAST CANCER
     Route: 042
  2. TAXOTERE [Suspect]
     Route: 042
  3. PYRIDOXINE HCL [Suspect]
     Indication: DRUG USE FOR UNKNOWN INDICATION
     Route: 049
  4. FRAGMIN [Concomitant]
     Indication: DEEP VEIN THROMBOSIS
     Route: 058
  5. ACETAMINOPHEN [Concomitant]
  6. AZITHROMYCIN [Concomitant]
  7. DEXAMETHASONE [Concomitant]
  8. FERROUS SULFATE TAB [Concomitant]
  9. FOLIC ACID [Concomitant]
  10. FUROSEMIDE [Concomitant]
  11. MORPHINE [Concomitant]
  12. OXYCODONE AND ACETAMINOPHEN [Concomitant]
  13. PANTOPRAZOLE SODIUM [Concomitant]
  14. PIPERACILLIN/TAZOBACTAM [Concomitant]
  15. PIPERACILLIN/TAZOBACTAM [Concomitant]
  16. SERTRALINE HCL [Concomitant]

REACTIONS (1)
  - PULMONARY EMBOLISM [None]
